FAERS Safety Report 5802697-8 (Version None)
Quarter: 2008Q3

REPORT INFORMATION
  Report Type: 
  Country: None (occurrence: None)
  Receive Date: 20080703
  Receipt Date: 20080619
  Transmission Date: 20090109
  Serious: Yes (Hospitalization)
  Sender: FDA-Public Use
  Company Number: 2008PV035500

PATIENT
  Age: 76 Year
  Sex: Female

DRUGS (4)
  1. SYMLIN [Suspect]
     Indication: TYPE 1 DIABETES MELLITUS
     Dosage: 30 MCG;QD;SC; 30 MCG;QD;SC; 15 MCG;QD; SC
     Route: 058
     Dates: start: 20080325, end: 20080101
  2. SYMLIN [Suspect]
     Indication: TYPE 1 DIABETES MELLITUS
     Dosage: 30 MCG;QD;SC; 30 MCG;QD;SC; 15 MCG;QD; SC
     Route: 058
     Dates: start: 20080101, end: 20080510
  3. SYMLIN [Suspect]
     Indication: TYPE 1 DIABETES MELLITUS
     Dosage: 30 MCG;QD;SC; 30 MCG;QD;SC; 15 MCG;QD; SC
     Route: 058
     Dates: start: 20080514
  4. NOVOLOG [Concomitant]

REACTIONS (2)
  - BLOOD GLUCOSE DECREASED [None]
  - BLOOD GLUCOSE INCREASED [None]
